FAERS Safety Report 7105549-9 (Version None)
Quarter: 2010Q4

REPORT INFORMATION
  Report Type: 
  Country: None (occurrence: None)
  Receive Date: 20101116
  Receipt Date: 20101106
  Transmission Date: 20110411
  Serious: Yes (Other)
  Sender: FDA-Public Use
  Company Number: CA-ROCHE-739988

PATIENT
  Sex: Female

DRUGS (1)
  1. ACCUTANE [Suspect]
     Indication: ACNE
     Route: 048
     Dates: start: 20100301, end: 20100705

REACTIONS (4)
  - BACTERIAL INFECTION [None]
  - ECZEMA [None]
  - FUNGAL INFECTION [None]
  - LIP BLISTER [None]
